FAERS Safety Report 9431964 (Version 1)
Quarter: 2013Q3

REPORT INFORMATION
  Report Type: Spontaneous
  Country: DK (occurrence: DK)
  Receive Date: 20130731
  Receipt Date: 20130731
  Transmission Date: 20140515
  Serious: Yes (Hospitalization)
  Sender: FDA-Public Use
  Company Number: DK-AMGEN-DNKSP2011070326

PATIENT
  Age: 66 Year
  Sex: Male
  Weight: 75 kg

DRUGS (3)
  1. ARANESP [Suspect]
     Indication: ANAEMIA
     Dosage: 5 MG, UNK
     Route: 065
     Dates: start: 20100120, end: 20110209
  2. LOSARTAN [Concomitant]
     Dosage: UNK
     Dates: start: 20101005
  3. AMLODIPIN                          /00972401/ [Concomitant]
     Dosage: 5 MG, UNK
     Dates: start: 20110215

REACTIONS (2)
  - Monoparesis [Recovering/Resolving]
  - Cerebral infarction [Recovering/Resolving]
